FAERS Safety Report 6516477-1 (Version None)
Quarter: 2009Q4

REPORT INFORMATION
  Report Type: 
  Country: None (occurrence: None)
  Receive Date: 20091223
  Receipt Date: 20091216
  Transmission Date: 20100525
  Serious: Yes (Other)
  Sender: FDA-Public Use
  Company Number: NL-JNJFOC-20091205306

PATIENT
  Sex: Female

DRUGS (8)
  1. REMICADE [Suspect]
     Indication: RHEUMATOID ARTHRITIS
     Route: 042
     Dates: start: 20010326, end: 20020823
  2. ENBREL [Suspect]
     Indication: RHEUMATOID ARTHRITIS
     Route: 058
     Dates: start: 20021018, end: 20091028
  3. LEDERTREXATE SODIUM [Concomitant]
     Route: 058
  4. PILOCARPINE HYDROCHLORIDE [Concomitant]
     Route: 048
  5. LOSEC MUPS HP [Concomitant]
     Route: 048
  6. FOLIUMZUUR [Concomitant]
     Route: 048
  7. MIRENA [Concomitant]
  8. NAPROXEN [Concomitant]

REACTIONS (2)
  - BREAST CANCER [None]
  - SQUAMOUS CELL CARCINOMA OF THE CERVIX [None]
